FAERS Safety Report 6338960-4 (Version None)
Quarter: 2009Q3

REPORT INFORMATION
  Report Type: 
  Country: None (occurrence: None)
  Receive Date: 20090903
  Receipt Date: 20090827
  Transmission Date: 20100115
  Serious: Yes (Life-Threatening, Hospitalization)
  Sender: FDA-Public Use
  Company Number: FR-CELGENEUS-056-C5013-09042633

PATIENT
  Sex: Male
  Weight: 57 kg

DRUGS (3)
  1. CC-5013 [Suspect]
     Indication: T-CELL LYMPHOMA
     Route: 048
     Dates: start: 20090415, end: 20090421
  2. CC-5013 [Suspect]
     Route: 048
     Dates: start: 20090316
  3. ACYCLOVIR [Concomitant]
     Indication: EYE INFECTION
     Route: 048
     Dates: start: 20090427, end: 20090610

REACTIONS (5)
  - CYTOMEGALOVIRUS INFECTION [None]
  - LEUKOPENIA [None]
  - NEUTROPENIA [None]
  - OCULAR VASCULITIS [None]
  - THROMBOCYTOPENIA [None]
